FAERS Safety Report 22588694 (Version 1)
Quarter: 2023Q2

REPORT INFORMATION
  Report Type: Spontaneous
  Country: DE (occurrence: DE)
  Receive Date: 20230612
  Receipt Date: 20230612
  Transmission Date: 20230722
  Serious: Yes (Other)
  Sender: FDA-Public Use
  Company Number: None

PATIENT
  Age: 18 Year
  Sex: Male

DRUGS (1)
  1. ISOTRETINOIN [Suspect]
     Active Substance: ISOTRETINOIN
     Indication: Acne
     Dosage: 10 MILLIGRAM DAILY; 0-0-1
     Route: 065
     Dates: start: 20220119, end: 20221114

REACTIONS (8)
  - Suicidal ideation [Not Recovered/Not Resolved]
  - Exercise tolerance decreased [Recovered/Resolved]
  - Apathy [Not Recovered/Not Resolved]
  - Depressed mood [Recovered/Resolved]
  - Listless [Not Recovered/Not Resolved]
  - Depressed mood [Not Recovered/Not Resolved]
  - Crying [Recovered/Resolved]
  - Somnolence [Recovered/Resolved]

NARRATIVE: CASE EVENT DATE: 20220101
